FAERS Safety Report 7683685-6 (Version None)
Quarter: 2011Q3

REPORT INFORMATION
  Report Type: 
  Country: None (occurrence: None)
  Receive Date: 20110815
  Receipt Date: 20110802
  Transmission Date: 20111222
  Serious: Yes (Hospitalization, Disabling, Other)
  Sender: FDA-Public Use
  Company Number: US-CELGENEUS-163-21880-11062055

PATIENT
  Sex: Female
  Weight: 66.8 kg

DRUGS (31)
  1. LORAZEPAM [Concomitant]
     Indication: INSOMNIA
     Dosage: 1 MILLIGRAM
     Route: 048
     Dates: end: 20110604
  2. LUTEIN [Concomitant]
     Dosage: 6 MILLIGRAM
     Route: 048
  3. ISOSORBIDE DINITRATE [Concomitant]
     Dosage: 10 MILLIGRAM
     Route: 048
     Dates: end: 20110604
  4. MIRTAZAPINE [Concomitant]
     Dosage: 15 MILLIGRAM
     Route: 048
  5. REVLIMID [Suspect]
     Indication: MULTIPLE MYELOMA
     Dosage: 25 MILLIGRAM
     Route: 048
     Dates: start: 20110420, end: 20110605
  6. OMEPRAZOLE [Concomitant]
     Indication: INSOMNIA
     Dosage: 20 MILLIGRAM
     Route: 048
     Dates: end: 20110604
  7. CHOLECALCIFEROL [Concomitant]
     Dosage: 2000 UNIT
     Route: 048
  8. IBUPROFEN [Concomitant]
     Dosage: 200 MILLIGRAM
     Route: 048
  9. CLOTRIMAZOLE AND BETAMETHASONE DIPROPIONATE [Concomitant]
     Dosage: 1-0.05%
  10. BUTALBITAL ACETAMINOPHEN AND CAFFEINE [Concomitant]
     Indication: PAIN
     Dosage: 50-325-40MG
     Route: 048
  11. ALUMINUM + MAGNESIUM HYDROXIDE-SIMETHICONE [Concomitant]
     Dosage: 200-200-20 MG/5ML
     Route: 048
  12. SITAGLIPTIN PHOSPHATE [Concomitant]
     Dosage: 100 MILLIGRAM
     Route: 048
     Dates: end: 20110604
  13. LIDOCAINE HCL VISCOUS [Concomitant]
     Dosage: 2 PERCENT
  14. CALCIUM CARBONATE [Concomitant]
     Dosage: 500 MILLIGRAM
     Route: 048
  15. LATANOPROST [Concomitant]
     Dosage: 1 DROPS
     Route: 047
     Dates: end: 20110604
  16. MIRALAX [Concomitant]
     Dosage: 17 GRAM
     Route: 048
  17. MULTIPLE VITAMIN [Concomitant]
     Route: 048
  18. SERTRALINE HYDROCHLORIDE [Concomitant]
     Indication: INSOMNIA
     Dosage: 50 MILLIGRAM
     Route: 048
     Dates: end: 20110604
  19. PREMARIN [Concomitant]
     Dosage: .625 GRAM
     Route: 067
  20. SIMVASTATIN [Concomitant]
     Dosage: 80 MILLIGRAM
     Route: 048
     Dates: end: 20110604
  21. VALSARTAN [Concomitant]
     Dosage: 160 MILLIGRAM
     Route: 048
     Dates: end: 20110604
  22. ASPIRIN [Concomitant]
     Dosage: 81 MILLIGRAM
     Route: 048
     Dates: end: 20110604
  23. HYDROCODONE BITARTRATE AND ACETAMINOPHEN [Concomitant]
     Indication: PAIN
     Dosage: 10-325MG
     Route: 048
     Dates: end: 20110331
  24. HYDROCODONE BITARTRATE AND ACETAMINOPHEN [Concomitant]
     Dosage: 1-2
     Route: 048
     Dates: end: 20110605
  25. FENOFIBRATE [Concomitant]
     Dosage: 145 MILLIGRAM
     Route: 048
     Dates: end: 20110604
  26. DIGOXIN [Concomitant]
     Dosage: .125 MILLIGRAM
     Route: 048
     Dates: end: 20110331
  27. AMLODIPINE [Concomitant]
     Dosage: 10 MILLIGRAM
     Route: 048
     Dates: end: 20110604
  28. NITROGLYCERIN [Concomitant]
     Indication: CHEST PAIN
     Dosage: .4 MILLIGRAM
     Route: 060
  29. METOPROLOL SUCCINATE [Concomitant]
     Route: 048
     Dates: end: 20110331
  30. ZINC [Concomitant]
     Dosage: 50 MILLIGRAM
     Route: 048
  31. DOCUSATE SODIUM [Concomitant]
     Dosage: 100 MILLIGRAM
     Route: 048

REACTIONS (5)
  - LEUKOPENIA [None]
  - THROMBOCYTOPENIA [None]
  - COLITIS [None]
  - PANCREATIC MASS [None]
  - COLON ADENOMA [None]
